FAERS Safety Report 21016056 (Version 6)
Quarter: 2022Q3

REPORT INFORMATION
  Report Type: Report from Study
  Country: US (occurrence: US)
  Receive Date: 20220628
  Receipt Date: 20220930
  Transmission Date: 20221027
  Serious: Yes (Hospitalization, Other)
  Sender: FDA-Public Use
  Company Number: NVSC2022US145767

PATIENT
  Sex: Male
  Weight: 68.027 kg

DRUGS (7)
  1. TREPROSTINIL [Suspect]
     Active Substance: TREPROSTINIL
     Indication: Pulmonary arterial hypertension
     Dosage: 1.25 NG/KG/MIN, CONT
     Route: 058
     Dates: start: 20220607
  2. TREPROSTINIL [Suspect]
     Active Substance: TREPROSTINIL
     Dosage: 15 NG/KG/MIN, CONT
     Route: 058
     Dates: start: 20220607
  3. TREPROSTINIL [Suspect]
     Active Substance: TREPROSTINIL
     Dosage: 3.75 NG/KG/MIN, CONT
     Route: 058
  4. OPSUMIT [Concomitant]
     Active Substance: MACITENTAN
     Indication: Product used for unknown indication
     Dosage: UNK
     Route: 065
  5. SILDENAFIL CITRATE [Concomitant]
     Active Substance: SILDENAFIL CITRATE
     Indication: Product used for unknown indication
     Dosage: UNK
     Route: 065
  6. XARELTO [Concomitant]
     Active Substance: RIVAROXABAN
     Indication: Product used for unknown indication
     Dosage: UNK
     Route: 065
  7. AMLODIPINE [Concomitant]
     Active Substance: AMLODIPINE BESYLATE
     Indication: Product used for unknown indication
     Dosage: UNK
     Route: 065

REACTIONS (7)
  - Cellulitis [Unknown]
  - Dyspnoea at rest [Unknown]
  - Application site pain [Unknown]
  - Injection site swelling [Unknown]
  - Injection site pain [Unknown]
  - Dyspnoea exertional [Unknown]
  - Accidental exposure to product [Unknown]
